FAERS Safety Report 4311103-4 (Version None)
Quarter: 2004Q1

REPORT INFORMATION
  Report Type: 
  Country: None (occurrence: None)
  Receive Date: 20040304
  Receipt Date: 20030306
  Transmission Date: 20041129
  Serious: No
  Sender: FDA-Public Use
  Company Number: US-BRISTOL-MYERS SQUIBB COMPANY-12203709

PATIENT
  Age: 2 Decade
  Sex: Male

DRUGS (2)
  1. DICLOCIL CAPS [Suspect]
     Indication: INFECTION
     Route: 048
  2. ALCOHOL [Concomitant]

REACTIONS (1)
  - AGGRESSION [None]
